FAERS Safety Report 23518869 (Version 3)
Quarter: 2024Q2

REPORT INFORMATION
  Report Type: Spontaneous
  Country: FR (occurrence: FR)
  Receive Date: 20240213
  Receipt Date: 20240507
  Transmission Date: 20240715
  Serious: Yes (Other)
  Sender: FDA-Public Use
  Company Number: FR-SERVIER-S23011392

PATIENT
  Age: 64 Year
  Sex: Female

DRUGS (14)
  1. ROSUVASTATIN [Suspect]
     Active Substance: ROSUVASTATIN
     Indication: Hypercholesterolaemia
     Dosage: 1 DOSAGE FORM, QD (THERAPY START DATE: 21-NOV-2023)
     Route: 048
     Dates: start: 20231121, end: 202401
  2. PERINDOPRIL [Suspect]
     Active Substance: PERINDOPRIL
     Indication: Hypertension
     Dosage: 1 DOSAGE FORM, QD (1 DF IN THE MORNING)
     Route: 048
     Dates: start: 202308, end: 202309
  3. PERINDOPRIL [Suspect]
     Active Substance: PERINDOPRIL
     Dosage: 1 DOSAGE FORM, QD
     Route: 048
     Dates: start: 202309, end: 202310
  4. ATORVASTATIN [Suspect]
     Active Substance: ATORVASTATIN
     Indication: Hypercholesterolaemia
     Dosage: 1 DOSAGE FORM, QD
     Route: 048
     Dates: start: 202306, end: 202310
  5. PERINDOPRIL ARGININE [Suspect]
     Active Substance: PERINDOPRIL ARGININE
     Indication: Hypertension
     Dosage: 1 DOSAGE FORM, QD (IN THE MORNING)
     Route: 048
     Dates: start: 202308, end: 202309
  6. COVERAM [Suspect]
     Active Substance: AMLODIPINE\PERINDOPRIL
     Indication: Hypertension
     Dosage: 1 DOSAGE FORM, QD
     Route: 048
     Dates: start: 202110, end: 202308
  7. COVERAM [Suspect]
     Active Substance: AMLODIPINE\PERINDOPRIL
     Dosage: 1 DOSAGE FORM, QD (1 DF QD  IN THE MORNING)
     Route: 048
     Dates: start: 20230926
  8. COVERAM [Suspect]
     Active Substance: AMLODIPINE\PERINDOPRIL
     Dosage: 0.5 DOSAGE FORM, QD (TOOK ONLY HALF OF IT)
     Route: 048
     Dates: start: 20231102
  9. EUTHYROX [Suspect]
     Active Substance: LEVOTHYROXINE SODIUM
     Indication: Autoimmune thyroiditis
     Dosage: 88 MICROGRAM, QD
     Route: 048
     Dates: start: 20230908
  10. EUTHYROX [Suspect]
     Active Substance: LEVOTHYROXINE SODIUM
     Indication: Hypothyroidism
  11. LEVOTHYROXINE SODIUM [Suspect]
     Active Substance: LEVOTHYROXINE SODIUM
     Indication: Hypothyroidism
     Dosage: 88 MICROGRAM
     Route: 065
     Dates: start: 202301, end: 20230908
  12. PRAVASTATIN [Concomitant]
     Active Substance: PRAVASTATIN
     Indication: Hypercholesterolaemia
     Dosage: 1 DOSAGE FORM, QD
     Route: 048
     Dates: start: 202401, end: 202402
  13. KARDEGIC [Concomitant]
     Active Substance: ASPIRIN DL-LYSINE
     Indication: Prophylaxis
     Dosage: 1 DOSAGE FORM, QD
     Route: 048
     Dates: start: 202309
  14. CRESTOR [Concomitant]
     Active Substance: ROSUVASTATIN CALCIUM
     Indication: Hypercholesterolaemia
     Dosage: 1 DOSAGE FORM, QD
     Route: 048
     Dates: start: 202402

REACTIONS (13)
  - Arrhythmia [Not Recovered/Not Resolved]
  - Hypotension [Recovered/Resolved]
  - Vertigo [Recovering/Resolving]
  - Blood pressure inadequately controlled [Recovered/Resolved]
  - Cough [Recovered/Resolved]
  - Asthenia [Recovering/Resolving]
  - Flushing [Recovered/Resolved]
  - Hypoaesthesia [Unknown]
  - Back pain [Not Recovered/Not Resolved]
  - Myalgia [Not Recovered/Not Resolved]
  - Arthralgia [Not Recovered/Not Resolved]
  - Underdose [Recovered/Resolved]
  - Product use issue [Recovered/Resolved]

NARRATIVE: CASE EVENT DATE: 20230801
